FAERS Safety Report 7357620-4 (Version None)
Quarter: 2011Q1

REPORT INFORMATION
  Report Type: 
  Country: None (occurrence: None)
  Receive Date: 20110309
  Receipt Date: 20110222
  Transmission Date: 20110831
  Serious: Yes (Hospitalization)
  Sender: FDA-Public Use
  Company Number: JPI-P-013746

PATIENT
  Age: 64 Year
  Sex: Male

DRUGS (15)
  1. RAMIPRIL [Concomitant]
  2. FUROSEMIDE [Concomitant]
  3. PAROXETINE HCL [Concomitant]
  4. INSULIN [Concomitant]
  5. FORMOTEROL FUMARATE [Concomitant]
  6. MODAFINIL [Concomitant]
  7. INDAPAMIDE [Concomitant]
  8. BENFLUOREX HYDROCHLORIDE [Concomitant]
  9. IRBESARTAN [Concomitant]
  10. ACETYLSALICYLATE LYSINE [Concomitant]
  11. PRAVASTATIN [Concomitant]
  12. XYREM [Suspect]
     Indication: NARCOLEPSY
     Dosage: SEE IMAGE
     Route: 048
     Dates: start: 20070508, end: 20070620
  13. XYREM [Suspect]
     Indication: NARCOLEPSY
     Dosage: SEE IMAGE
     Route: 048
     Dates: start: 20090526, end: 20100315
  14. XYREM [Suspect]
     Indication: NARCOLEPSY
     Dosage: SEE IMAGE
     Route: 048
     Dates: start: 20070621, end: 20090525
  15. XYREM [Suspect]
     Indication: NARCOLEPSY
     Dosage: SEE IMAGE
     Route: 048
     Dates: start: 20100316

REACTIONS (1)
  - CARDIAC FAILURE [None]
